FAERS Safety Report 7760910-4 (Version None)
Quarter: 2011Q3

REPORT INFORMATION
  Report Type: 
  Country: None (occurrence: None)
  Receive Date: 20110919
  Receipt Date: 20110915
  Transmission Date: 20111222
  Serious: Yes (Hospitalization)
  Sender: FDA-Public Use
  Company Number: US-GILEAD-2011-0043980

PATIENT
  Age: 61 Year
  Sex: Female

DRUGS (2)
  1. LETAIRIS [Suspect]
     Indication: PRODUCT USED FOR UNKNOWN INDICATION
     Route: 048
     Dates: start: 20081218
  2. VENTAVIS [Concomitant]

REACTIONS (2)
  - CHEST PAIN [None]
  - DYSURIA [None]
